FAERS Safety Report 9659137 (Version 1)
Quarter: 2013Q4

REPORT INFORMATION
  Report Type: Spontaneous
  Country: BR (occurrence: BR)
  Receive Date: 20131031
  Receipt Date: 20131031
  Transmission Date: 20140711
  Serious: Yes (Death)
  Sender: FDA-Public Use
  Company Number: BR-AMGEN-BRASP2013076600

PATIENT
  Age: 74 Year
  Sex: Female
  Weight: 42 kg

DRUGS (3)
  1. PROLIA [Suspect]
     Indication: OSTEOPOROSIS
     Dosage: 60 MG/ML, UNK
     Route: 065
     Dates: start: 20130124
  2. CHEMOTHERAPEUTICS [Concomitant]
     Indication: GASTRIC CANCER
     Dosage: UNK
     Route: 065
  3. ALENDRONATE SODIUM [Concomitant]
     Dosage: UNK
     Route: 065

REACTIONS (2)
  - Neoplasm malignant [Fatal]
  - Surgery [Unknown]
